FAERS Safety Report 6705985-6 (Version None)
Quarter: 2010Q2

REPORT INFORMATION
  Report Type: 
  Country: None (occurrence: None)
  Receive Date: 20100430
  Receipt Date: 20100430
  Transmission Date: 20101027
  Serious: Yes (Other)
  Sender: FDA-Public Use
  Company Number: None

PATIENT
  Age: 38 Year
  Sex: Female
  Weight: 65.7716 kg

DRUGS (1)
  1. LEVAQUIN [Suspect]
     Indication: PNEUMONIA
     Dosage: 750 MG ONCE DAILY PO
     Route: 048

REACTIONS (4)
  - ARTHRALGIA [None]
  - INSOMNIA [None]
  - MYALGIA [None]
  - TENDON PAIN [None]
